FAERS Safety Report 8118877-5 (Version None)
Quarter: 2012Q1

REPORT INFORMATION
  Report Type: 
  Country: None (occurrence: None)
  Receive Date: 20120207
  Receipt Date: 20120127
  Transmission Date: 20120608
  Serious: Yes (Hospitalization, Other)
  Sender: FDA-Public Use
  Company Number: US-JNJFOC-20120112930

PATIENT

DRUGS (2)
  1. REMICADE [Suspect]
     Indication: CROHN'S DISEASE
     Dosage: TREATED FOR ONE YEAR
     Route: 042
  2. HUMIRA [Suspect]
     Indication: CROHN'S DISEASE
     Dosage: TOOK HUNIRA FOR 2 MONTHS; 40 MG/0.8 ML PRE-FILLED SYRINGE

REACTIONS (2)
  - LYMPHOMA [None]
  - LUPUS-LIKE SYNDROME [None]
